FAERS Safety Report 7390732-8 (Version None)
Quarter: 2011Q2

REPORT INFORMATION
  Report Type: 
  Country: None (occurrence: None)
  Receive Date: 20110404
  Receipt Date: 20110324
  Transmission Date: 20111010
  Serious: No
  Sender: FDA-Public Use
  Company Number: US-BIOGENIDEC-2011BI011338

PATIENT
  Sex: Female

DRUGS (2)
  1. TYSABRI [Suspect]
     Route: 042
     Dates: start: 20070720, end: 20090109
  2. TYSABRI [Suspect]
     Indication: MULTIPLE SCLEROSIS
     Route: 042
     Dates: start: 20090605, end: 20100514

REACTIONS (4)
  - GASTROINTESTINAL DISORDER [None]
  - PRECANCEROUS CELLS PRESENT [None]
  - GASTROOESOPHAGEAL REFLUX DISEASE [None]
  - BLADDER DISORDER [None]
